FAERS Safety Report 6804175-6 (Version None)
Quarter: 2010Q2

REPORT INFORMATION
  Report Type: 
  Country: None (occurrence: None)
  Receive Date: 20100628
  Receipt Date: 20070205
  Transmission Date: 20101027
  Serious: Yes (Other)
  Sender: FDA-Public Use
  Company Number: US-PFIZER INC-2007007573

PATIENT
  Age: 30 Year
  Sex: Female

DRUGS (6)
  1. DOSTINEX [Suspect]
     Indication: HYPERPROLACTINAEMIA
     Dosage: 3 TABLETS/TWICE A WEEK=1.5MG/WEEK
     Route: 048
  2. CABERGOLINE [Suspect]
     Indication: HYPERPROLACTINAEMIA
  3. ADVAIR DISKUS 100/50 [Concomitant]
  4. ALBUTEROL [Concomitant]
  5. AVANDIA [Concomitant]
  6. PARLODEL [Concomitant]

REACTIONS (3)
  - EYE SWELLING [None]
  - HEADACHE [None]
  - SINUS DISORDER [None]
